FAERS Safety Report 18108239 (Version 1)
Quarter: 2020Q3

REPORT INFORMATION
  Report Type: Spontaneous
  Country: US (occurrence: US)
  Receive Date: 20200804
  Receipt Date: 20200804
  Transmission Date: 20201103
  Serious: No
  Sender: FDA-Public Use
  Company Number: None

PATIENT
  Age: 86 Year
  Sex: Male
  Weight: 97 kg

DRUGS (1)
  1. LISINOPRIL (LISINOPRIL 40MG TAB) [Suspect]
     Active Substance: LISINOPRIL
     Indication: HYPERTENSION
     Dosage: ?          OTHER DOSE:1 TAB;?
     Route: 048
     Dates: start: 20161207, end: 20171013

REACTIONS (4)
  - Accidental exposure to product [None]
  - Angioedema [None]
  - Dyspnoea [None]
  - Swelling face [None]

NARRATIVE: CASE EVENT DATE: 20171013
